FAERS Safety Report 9098071 (Version 2)
Quarter: 2013Q3

REPORT INFORMATION
  Report Type: Spontaneous
  Country: PT (occurrence: PT)
  Receive Date: 20130213
  Receipt Date: 20130705
  Transmission Date: 20140515
  Serious: Yes (Disabling)
  Sender: FDA-Public Use
  Company Number: PT-SANOFI-AVENTIS-2013SA009970

PATIENT
  Age: 62 Year
  Sex: Female

DRUGS (4)
  1. TAXOTERE [Suspect]
     Indication: PRODUCT USED FOR UNKNOWN INDICATION
     Route: 042
     Dates: start: 20130108
  2. CYCLOPHOSPHAMIDE [Concomitant]
  3. FLUOROURACILO [Concomitant]
  4. EPIRUBICIN [Concomitant]

REACTIONS (4)
  - Dysphonia [Recovered/Resolved]
  - Pain [Recovered/Resolved]
  - Rash erythematous [Recovered/Resolved]
  - Injection site induration [Recovered/Resolved]
